FAERS Safety Report 23409222 (Version 1)
Quarter: 2024Q1

REPORT INFORMATION
  Report Type: Other
  Country: US (occurrence: None)
  Receive Date: 20240117
  Receipt Date: 20240117
  Transmission Date: 20240410
  Serious: Yes (Other)
  Sender: FDA-Public Use
  Company Number: US-ROCHE-3488717

PATIENT
  Age: 72 Year
  Sex: Male

DRUGS (10)
  1. OCREVUS [Suspect]
     Active Substance: OCRELIZUMAB
     Indication: Multiple sclerosis
     Route: 065
  2. CRESTOR [Concomitant]
     Active Substance: ROSUVASTATIN CALCIUM
  3. TAMSULOSIN [Concomitant]
     Active Substance: TAMSULOSIN
  4. MATZIM LA [Concomitant]
     Active Substance: DILTIAZEM HYDROCHLORIDE
  5. ESCITALOPRAM [Concomitant]
     Active Substance: ESCITALOPRAM OXALATE
  6. XARELTO [Concomitant]
     Active Substance: RIVAROXABAN
  7. VITAMIN D3 [Concomitant]
     Active Substance: CHOLECALCIFEROL
  8. MIRALAX [Concomitant]
     Active Substance: POLYETHYLENE GLYCOL 3350
  9. MODAFINIL [Concomitant]
     Active Substance: MODAFINIL
  10. BUPROPION [Concomitant]
     Active Substance: BUPROPION

REACTIONS (7)
  - Urinary tract infection [Unknown]
  - Atrial fibrillation [Unknown]
  - Rash [Unknown]
  - Haematoma [Unknown]
  - Dizziness [Unknown]
  - Constipation [Unknown]
  - Back pain [Unknown]
